FAERS Safety Report 10454278 (Version 1)
Quarter: 2014Q3

REPORT INFORMATION
  Report Type: Spontaneous
  Country: FR (occurrence: FR)
  Receive Date: 20140915
  Receipt Date: 20140915
  Transmission Date: 20150326
  Serious: Yes (Hospitalization)
  Sender: FDA-Public Use
  Company Number: FR-BAUSCH-BL-2014-005071

PATIENT
  Age: 84 Year
  Sex: Male

DRUGS (8)
  1. VIRGAN [Suspect]
     Active Substance: GANCICLOVIR
     Indication: ULCERATIVE KERATITIS
     Route: 047
     Dates: start: 20140807
  2. LASILIX [Concomitant]
     Active Substance: FUROSEMIDE
     Indication: PRODUCT USED FOR UNKNOWN INDICATION
  3. PREVISCAN [Concomitant]
     Active Substance: FLUINDIONE
     Indication: PRODUCT USED FOR UNKNOWN INDICATION
  4. ARICEPT [Concomitant]
     Active Substance: DONEPEZIL HYDROCHLORIDE
     Indication: PRODUCT USED FOR UNKNOWN INDICATION
  5. ZOVIRAX [Suspect]
     Active Substance: ACYCLOVIR
     Route: 048
     Dates: start: 20140807, end: 20140826
  6. TOBREX [Suspect]
     Active Substance: TOBRAMYCIN
     Indication: ULCERATIVE KERATITIS
     Dosage: 2 ED EVERY DAY
     Route: 047
     Dates: start: 20140807
  7. DIFFU K [Concomitant]
     Active Substance: POTASSIUM CHLORIDE
     Indication: PRODUCT USED FOR UNKNOWN INDICATION
  8. ZOVIRAX [Suspect]
     Active Substance: ACYCLOVIR
     Indication: ULCERATIVE KERATITIS
     Route: 048
     Dates: start: 20140705, end: 20140807

REACTIONS (2)
  - Leukopenia [Recovered/Resolved]
  - Thrombocytopenia [Recovered/Resolved]

NARRATIVE: CASE EVENT DATE: 20140819
